FAERS Safety Report 16598326 (Version 2)
Quarter: 2019Q3

REPORT INFORMATION
  Report Type: Report from Study
  Country: JP (occurrence: JP)
  Receive Date: 20190719
  Receipt Date: 20190722
  Transmission Date: 20191004
  Serious: Yes (Hospitalization)
  Sender: FDA-Public Use
  Company Number: JP-ACTELION-A-CH2017-163618

PATIENT
  Age: 52 Year
  Sex: Male
  Weight: 71.2 kg

DRUGS (29)
  1. UPTRAVI [Suspect]
     Active Substance: SELEXIPAG
     Dosage: 1.4 MG, BID
     Route: 048
     Dates: start: 20181214, end: 20190121
  2. XARELTO [Concomitant]
     Active Substance: RIVAROXABAN
     Dosage: 15 MG, QD
     Dates: start: 20171121, end: 20190220
  3. UPTRAVI [Suspect]
     Active Substance: SELEXIPAG
     Indication: PULMONARY ARTERIAL HYPERTENSION
     Dosage: 0.2 MG, BID
     Route: 048
     Dates: start: 20170119, end: 20170202
  4. UPTRAVI [Suspect]
     Active Substance: SELEXIPAG
     Dosage: 0.4 MG, BID
     Route: 048
     Dates: start: 20170203, end: 20170209
  5. BEZAFIBRATE [Concomitant]
     Active Substance: BEZAFIBRATE
  6. CETIRIZINE [Concomitant]
     Active Substance: CETIRIZINE HYDROCHLORIDE
  7. UPTRAVI [Suspect]
     Active Substance: SELEXIPAG
     Dosage: 1.2 MG, BID
     Route: 048
     Dates: start: 20190122
  8. LORATADINE. [Concomitant]
     Active Substance: LORATADINE
  9. AMOXICILLIN HYDRATE [Concomitant]
     Active Substance: AMOXICILLIN
     Dosage: 1000 MG, QD
     Route: 048
     Dates: start: 20170407, end: 20170411
  10. PARIET [Concomitant]
     Active Substance: RABEPRAZOLE SODIUM
  11. AMLODIPINE [Concomitant]
     Active Substance: AMLODIPINE BESYLATE
     Indication: HYPERTENSION
     Dosage: 2.5 MG, QD
  12. UPTRAVI [Suspect]
     Active Substance: SELEXIPAG
     Dosage: 0.6 MG, BID
     Route: 048
     Dates: start: 20170210, end: 20170223
  13. UPTRAVI [Suspect]
     Active Substance: SELEXIPAG
     Dosage: 1 MG, BID
     Route: 048
     Dates: start: 20170303, end: 20170309
  14. SELBEX [Concomitant]
     Active Substance: TEPRENONE
  15. ANOPROLIN [Concomitant]
     Active Substance: ALLOPURINOL
  16. UPTRAVI [Suspect]
     Active Substance: SELEXIPAG
     Dosage: 0.8 MG, BID
     Route: 048
     Dates: start: 20170224, end: 20170302
  17. UPTRAVI [Suspect]
     Active Substance: SELEXIPAG
     Dosage: 1.6 MG, BID
     Route: 048
     Dates: start: 20170331, end: 20181213
  18. TAKECAB [Concomitant]
     Active Substance: VONOPRAZAN FUMURATE
     Indication: GASTROOESOPHAGEAL REFLUX DISEASE
     Dosage: 20 MG, QD
     Dates: start: 20170119
  19. AZUNOL ST [Concomitant]
     Indication: LEUKOPLAKIA ORAL
  20. UPTRAVI [Suspect]
     Active Substance: SELEXIPAG
     Dosage: 1.2 MG, BID
     Route: 048
     Dates: start: 20170310, end: 20170323
  21. UPTRAVI [Suspect]
     Active Substance: SELEXIPAG
     Dosage: 1.4 MG, BID
     Route: 048
     Dates: start: 20170324, end: 20170330
  22. ADEMPAS [Concomitant]
     Active Substance: RIOCIGUAT
     Indication: PULMONARY ARTERIAL HYPERTENSION
     Dosage: 7.5 MG, QD
     Route: 048
  23. EPINASTINE. [Concomitant]
     Active Substance: EPINASTINE HYDROCHLORIDE
     Indication: RHINITIS ALLERGIC
     Dosage: 20 MG, QD
     Route: 048
     Dates: start: 20170224
  24. OPSUMIT [Suspect]
     Active Substance: MACITENTAN
     Indication: PULMONARY ARTERIAL HYPERTENSION
     Dosage: 10 MG, QD
     Route: 048
     Dates: start: 20161025
  25. ALOSITOL [Concomitant]
     Active Substance: ALLOPURINOL
  26. LIVALO [Concomitant]
     Active Substance: PITAVASTATIN CALCIUM
     Indication: DYSLIPIDAEMIA
     Dosage: 20 MG, QD
  27. DIART [Concomitant]
     Active Substance: AZOSEMIDE
     Indication: OEDEMA
     Dosage: 60 MG, QD
     Route: 048
     Dates: start: 20170428, end: 20181120
  28. DIART [Concomitant]
     Active Substance: AZOSEMIDE
     Dosage: 30 MG, QD
     Route: 048
     Dates: start: 20181214
  29. CLARITIN [Concomitant]
     Active Substance: LORATADINE
     Indication: RHINITIS ALLERGIC
     Dosage: 10 MG, QD
     Route: 048
     Dates: end: 20170223

REACTIONS (13)
  - Oedema peripheral [Recovering/Resolving]
  - Atrial septal defect [Recovered/Resolved]
  - Glossectomy [Unknown]
  - Localised oedema [Recovering/Resolving]
  - Nasopharyngitis [Recovered/Resolved]
  - Face oedema [Recovering/Resolving]
  - Alanine aminotransferase increased [Recovering/Resolving]
  - Anaemia [Recovered/Resolved]
  - Atrial septal defect repair [Unknown]
  - Hepatic function abnormal [Recovering/Resolving]
  - Tongue ulceration [Recovered/Resolved]
  - Sleep apnoea syndrome [Not Recovered/Not Resolved]
  - Blood alkaline phosphatase abnormal [Recovering/Resolving]

NARRATIVE: CASE EVENT DATE: 20161110
